FAERS Safety Report 4443738-2 (Version None)
Quarter: 2004Q3

REPORT INFORMATION
  Report Type: 
  Country: None (occurrence: None)
  Receive Date: 20040729
  Receipt Date: 20040422
  Transmission Date: 20050211
  Serious: Yes (Death)
  Sender: FDA-Public Use
  Company Number: USA-2004-0014803

PATIENT
  Age: 30 Year
  Sex: Male

DRUGS (2)
  1. MS CONTIN [Suspect]
  2. XANAX [Suspect]
     Indication: ANXIETY

REACTIONS (2)
  - DRUG ABUSER [None]
  - OVERDOSE [None]
